FAERS Safety Report 7293379-7 (Version None)
Quarter: 2011Q1

REPORT INFORMATION
  Report Type: 
  Country: None (occurrence: None)
  Receive Date: 20110215
  Receipt Date: 20110209
  Transmission Date: 20110831
  Serious: Yes (Death, Other)
  Sender: FDA-Public Use
  Company Number: DE-CELGENEUS-062-C5013-11021182

PATIENT
  Age: 69 Year
  Sex: Female

DRUGS (4)
  1. MELPHALAN [Suspect]
     Indication: MULTIPLE MYELOMA
     Route: 065
     Dates: start: 20070608, end: 20080704
  2. CC-5013 [Suspect]
     Indication: MULTIPLE MYELOMA
     Route: 048
     Dates: start: 20070608, end: 20080401
  3. CC-5013 [Suspect]
     Dates: start: 20080701, end: 20080908
  4. PREDNISONE [Suspect]
     Indication: MULTIPLE MYELOMA
     Route: 065
     Dates: start: 20070608, end: 20080704

REACTIONS (2)
  - ACUTE MYELOID LEUKAEMIA [None]
  - MULTIPLE MYELOMA [None]
